FAERS Safety Report 6126946-4 (Version None)
Quarter: 2009Q1

REPORT INFORMATION
  Report Type: 
  Country: None (occurrence: None)
  Receive Date: 20090320
  Receipt Date: 20080929
  Transmission Date: 20090719
  Serious: No
  Sender: FDA-Public Use
  Company Number: US-ABBOTT-08P-163-0479786-00

PATIENT
  Sex: Female

DRUGS (31)
  1. ERYTHROMYCIN [Suspect]
     Indication: DRUG USE FOR UNKNOWN INDICATION
  2. DIOVAN HCT [Concomitant]
     Indication: HYPERTENSION
  3. ATORVASTATIN CALCIUM [Concomitant]
     Indication: BLOOD CHOLESTEROL INCREASED
  4. ADALIMUMAB [Concomitant]
     Indication: CROHN'S DISEASE
     Route: 050
     Dates: start: 20071108
  5. ADALIMUMAB [Concomitant]
     Indication: ANKYLOSING SPONDYLITIS
  6. MESALAZINE [Concomitant]
     Indication: CROHN'S DISEASE
  7. LANSOPRAZOLE [Concomitant]
     Indication: GASTRITIS
     Dosage: 30 MINUTES BEFORE DINNER
  8. LANSOPRAZOLE [Concomitant]
     Indication: CROHN'S DISEASE
  9. CYCLOBENZAPRINE HCL [Concomitant]
     Indication: SPONDYLITIS
     Dosage: AT BEDTIME (TAKE 2 FOR FLARE-UPS)
  10. CYCLOBENZAPRINE HCL [Concomitant]
     Indication: FIBROMYALGIA
  11. ACETAMINOPHEN W/ PROPOXYPHENE HCL [Concomitant]
     Indication: ARTHRITIS
     Dosage: 100/650
  12. ACETAMINOPHEN W/ PROPOXYPHENE HCL [Concomitant]
     Indication: PAIN
  13. PARACETAMOL [Concomitant]
     Indication: ARTHRITIS
     Dosage: 650 MG
  14. PARACETAMOL [Concomitant]
     Indication: PAIN
  15. CITRACAL + D [Concomitant]
     Indication: OSTEOPOROSIS
     Dosage: 325 MG AT BEDTIME
  16. CITRACAL + D [Concomitant]
     Dosage: REDUCED DOSAGE
     Dates: start: 20080312
  17. CYCLOSPORINE [Concomitant]
     Indication: PINGUECULA
     Dosage: IN RIGHT EYE
  18. CYCLOSPORINE [Concomitant]
     Indication: ANKYLOSING SPONDYLITIS
  19. HEPARIN [Concomitant]
     Indication: CYSTITIS INTERSTITIAL
     Dosage: 1-3 TIMES/WEEK
     Dates: start: 20080723
  20. GABAPENTIN [Concomitant]
     Indication: CYSTITIS INTERSTITIAL
     Dosage: 300 MG
     Dates: start: 20080604
  21. HYDROXYZINE [Concomitant]
     Indication: CYSTITIS INTERSTITIAL
  22. PENTOSAN POLYSULFATE SODIUM [Concomitant]
     Indication: CYSTITIS INTERSTITIAL
     Dates: start: 20080112, end: 20080413
  23. URELLE [Concomitant]
     Indication: CYSTITIS INTERSTITIAL
  24. NARINE [Concomitant]
     Indication: HOUSE DUST ALLERGY
  25. FLONASE [Concomitant]
     Indication: HOUSE DUST ALLERGY
     Dosage: .05%
  26. MONTELUKAST [Concomitant]
     Indication: HOUSE DUST ALLERGY
  27. NEIL MEDI SINUS RINSE OTC [Concomitant]
     Indication: HOUSE DUST ALLERGY
  28. TRIAZ PAD (BENZOYL PEROXIDE 3%) [Concomitant]
     Indication: ACNE
     Dosage: PAD APPLY TO FACE AT BEDTIME
  29. TAZAROTENE [Concomitant]
     Indication: ACNE
     Dosage: .1% APPLY TO TRIAZ PAD, THEN TO FACE AT BEDTIME
  30. PIMECROLIMUS [Concomitant]
     Indication: ACNE
     Dosage: 1% APPLY TO FACE AS NEEDED FOR REDNESS/DRYNESS
  31. AVAR GEL [Concomitant]
     Indication: ACNE
     Dosage: 10% APPLY TO FACE FOR ACNE FLAREUPS

REACTIONS (2)
  - DIARRHOEA [None]
  - VOMITING [None]
